FAERS Safety Report 8317169-9 (Version None)
Quarter: 2012Q2

REPORT INFORMATION
  Report Type: 
  Country: None (occurrence: None)
  Receive Date: 20120425
  Receipt Date: 20120410
  Transmission Date: 20120825
  Serious: Yes (Other)
  Sender: FDA-Public Use
  Company Number: JP-2012-13407

PATIENT
  Age: 91 Year
  Sex: Male
  Weight: 52 kg

DRUGS (4)
  1. SAMSCA [Suspect]
     Indication: FLUID RETENTION
     Dosage: 15 MG MILLIGRAM(S), GAM, ORAL
     Route: 048
     Dates: start: 20111223, end: 20111230
  2. TRICHLORMETHIAZIDE [Suspect]
     Indication: CARDIAC FAILURE
     Dosage: 2 MG  MILLIGRAM(S), DAILY DOSE, ORAL
     Route: 048
  3. FUROSEMIDE [Suspect]
     Indication: CARDIAC FAILURE
     Dosage: 60 MG MILLIGRAM(S), DAILY DOSE, ORAL
     Route: 048
  4. TANADOPA (DOCARPAMINE) [Concomitant]

REACTIONS (1)
  - RENAL IMPAIRMENT [None]
